FAERS Safety Report 11505384 (Version 1)
Quarter: 2015Q3

REPORT INFORMATION
  Report Type: Spontaneous
  Country: US (occurrence: US)
  Receive Date: 20150915
  Receipt Date: 20150915
  Transmission Date: 20151125
  Serious: No
  Sender: FDA-Public Use
  Company Number: US-ROCHE-748208

PATIENT
  Sex: Male

DRUGS (4)
  1. COPEGUS [Suspect]
     Active Substance: RIBAVIRIN
     Dosage: SECOND COURSE, DIVIDED DOSES
     Route: 048
  2. COPEGUS [Suspect]
     Active Substance: RIBAVIRIN
     Indication: HEPATITIS C
     Dosage: FIRST COURSE
     Route: 048
  3. PEGASYS [Suspect]
     Active Substance: PEGINTERFERON ALFA-2A
     Dosage: SECOND COURSE, FORM: PRE-FILLED SYRINGE (PFS)
     Route: 058
  4. PEGASYS [Suspect]
     Active Substance: PEGINTERFERON ALFA-2A
     Indication: HEPATITIS C
     Dosage: FIRST COURSE
     Route: 058

REACTIONS (5)
  - Hypoaesthesia [Unknown]
  - Hyperhidrosis [Unknown]
  - Rib fracture [Unknown]
  - Musculoskeletal disorder [Not Recovered/Not Resolved]
  - Abdominal pain [Unknown]
